FAERS Safety Report 9391017 (Version 1)
Quarter: 2013Q3

REPORT INFORMATION
  Report Type: Spontaneous
  Country: US (occurrence: None)
  Receive Date: 20130705
  Receipt Date: 20130705
  Transmission Date: 20140515
  Serious: Yes (Other)
  Sender: FDA-Public Use
  Company Number: None

PATIENT
  Age: 71 Year
  Sex: Male

DRUGS (4)
  1. ZYTIGA 250MG [Suspect]
     Indication: PROSTATE CANCER
     Route: 048
     Dates: start: 20130103
  2. METOPROLOL [Concomitant]
  3. PREDNISONE [Concomitant]
  4. LUPRON [Concomitant]

REACTIONS (2)
  - Headache [None]
  - Myalgia [None]
